FAERS Safety Report 19891634 (Version 2)
Quarter: 2021Q4

REPORT INFORMATION
  Report Type: Report from Study
  Country: IT (occurrence: IT)
  Receive Date: 20210928
  Receipt Date: 20211004
  Transmission Date: 20220303
  Serious: Yes (Hospitalization)
  Sender: FDA-Public Use
  Company Number: IT-ROCHE-2350482

PATIENT
  Age: 66 Year
  Sex: Female
  Weight: 59 kg

DRUGS (8)
  1. TRASTUZUMAB [Suspect]
     Active Substance: TRASTUZUMAB
     Indication: Breast cancer
     Dosage: 8 MILLIGRAM/KILOGRAM, Q3W (LAST DOSE BEFORE SAE 02/JUL/2019 DOSE-472 UNIT NOT REPORTED THEN 6 MG/KG)
     Route: 042
     Dates: start: 20190430
  2. ATEZOLIZUMAB [Suspect]
     Active Substance: ATEZOLIZUMAB
     Indication: Breast cancer
     Dosage: 1200 MILLIGRAM, Q3W (DATE OF LAST DOSE OF ATEZOLIZUMAB OF 1200 MG PRIOR TO SAE ONSET: 02/JUL/2019)
     Route: 042
     Dates: start: 20190430
  3. PERTUZUMAB [Suspect]
     Active Substance: PERTUZUMAB
     Indication: Breast cancer
     Dosage: 840 MILLIGRAM, Q3W (LAST DOSE BEFORE SAE 02/JUL/2019)
     Route: 042
     Dates: start: 20190430
  4. CARBOPLATIN [Concomitant]
     Active Substance: CARBOPLATIN
     Indication: Breast cancer
     Dosage: 200 MILLIGRAM (LAST DOSE BEFORE SAE 03/JUL/2019)
     Route: 042
     Dates: start: 20190430
  5. TAXOL [Concomitant]
     Active Substance: PACLITAXEL
     Indication: Breast cancer
     Dosage: 90 MILLIGRAM/SQ. METER, Q3W (LAST DOSE BEFORE SAE 03/JUL/2019)
     Route: 042
     Dates: start: 20190430
  6. OMEPRAZOLE [Concomitant]
     Active Substance: OMEPRAZOLE
     Indication: Gastrointestinal disorder prophylaxis
     Dosage: UNK
     Dates: start: 20190702
  7. ZOFRAN [Concomitant]
     Active Substance: ONDANSETRON HYDROCHLORIDE
     Indication: Vomiting
     Dosage: UNK
     Dates: start: 20190702, end: 20190702
  8. TRIMETON [Concomitant]
     Active Substance: CHLORPHENIRAMINE MALEATE
     Dosage: UNK
     Dates: start: 20190702, end: 20190703

REACTIONS (3)
  - Fatigue [Recovered/Resolved]
  - Hypersensitivity [Recovered/Resolved]
  - Off label use [Unknown]

NARRATIVE: CASE EVENT DATE: 20190430
